FAERS Safety Report 12562841 (Version 2)
Quarter: 2018Q4

REPORT INFORMATION
  Report Type: Report from Study
  Country: BR (occurrence: BR)
  Receive Date: 20160715
  Receipt Date: 20181225
  Transmission Date: 20190204
  Serious: Yes (Life-Threatening)
  Sender: FDA-Public Use
  Company Number: PHHY2016BR097325

PATIENT
  Sex: Female
  Weight: 85 kg

DRUGS (2)
  1. SANDOSTATIN LAR DEPOT [Suspect]
     Active Substance: OCTREOTIDE ACETATE
     Indication: ACROMEGALY
     Dosage: 40 MG, QMO
     Route: 030
     Dates: start: 2003
  2. SANDOSTATIN LAR DEPOT [Suspect]
     Active Substance: OCTREOTIDE ACETATE
     Dosage: 30 MG, QMO
     Route: 030

REACTIONS (11)
  - Asthenia [Unknown]
  - Malaise [Not Recovered/Not Resolved]
  - Pain [Unknown]
  - Irritability [Unknown]
  - Bone disorder [Unknown]
  - Crying [Unknown]
  - Bone pain [Unknown]
  - Apparent death [Unknown]
  - Nervousness [Unknown]
  - Tremor [Unknown]
  - Headache [Unknown]
